FAERS Safety Report 7025102-5 (Version None)
Quarter: 2010Q4

REPORT INFORMATION
  Report Type: 
  Country: None (occurrence: None)
  Receive Date: 20101001
  Receipt Date: 20100922
  Transmission Date: 20110411
  Serious: Yes (Hospitalization)
  Sender: FDA-Public Use
  Company Number: US-ASTRAZENECA-2010SE44576

PATIENT
  Age: 64 Year
  Sex: Male

DRUGS (8)
  1. NEXIUM [Suspect]
     Indication: GASTRITIS PROPHYLAXIS
     Route: 048
     Dates: start: 20060101, end: 20090101
  2. PROGRAFT [Concomitant]
  3. CELLCEPT [Concomitant]
  4. PREDNISONE [Concomitant]
  5. LANTUS [Concomitant]
  6. HUMALOG [Concomitant]
  7. NIFEDIPINE [Concomitant]
  8. SIMVASTATIN [Concomitant]

REACTIONS (2)
  - DRUG DOSE OMISSION [None]
  - RENAL TRANSPLANT [None]
